FAERS Safety Report 18302786 (Version 1)
Quarter: 2020Q3

REPORT INFORMATION
  Report Type: Spontaneous
  Country: CN (occurrence: CN)
  Receive Date: 20200923
  Receipt Date: 20200923
  Transmission Date: 20201103
  Serious: Yes (Hospitalization)
  Sender: FDA-Public Use
  Company Number: CN-PFIZER INC-2020367153

PATIENT
  Age: 70 Year
  Sex: Female
  Weight: 50 kg

DRUGS (2)
  1. FU RUI [Concomitant]
     Indication: BREAST CANCER
     Dosage: 1.000 MG, 1X/DAY
     Route: 048
     Dates: start: 20200618, end: 20200730
  2. IBRANCE [Suspect]
     Active Substance: PALBOCICLIB
     Indication: BREAST CANCER
     Dosage: 1.000 MG, 1X/DAY
     Route: 048
     Dates: start: 20200618, end: 20200730

REACTIONS (1)
  - Cytopenia [Recovering/Resolving]

NARRATIVE: CASE EVENT DATE: 20200731
